FAERS Safety Report 14776704 (Version 1)
Quarter: 2018Q2

REPORT INFORMATION
  Report Type: Report from Study
  Country: US (occurrence: US)
  Receive Date: 20180419
  Receipt Date: 20180419
  Transmission Date: 20180711
  Serious: Yes (Hospitalization, Other)
  Sender: FDA-Public Use
  Company Number: US-ROCHE-2109216

PATIENT
  Sex: Female

DRUGS (1)
  1. XOLAIR [Suspect]
     Active Substance: OMALIZUMAB
     Indication: ASTHMA
     Dosage: ONGOING-UNKNOWN
     Route: 058

REACTIONS (4)
  - Infection [Unknown]
  - Epistaxis [Unknown]
  - Aspirin-exacerbated respiratory disease [Unknown]
  - Myocardial infarction [Unknown]
